FAERS Safety Report 9134989 (Version 1)
Quarter: 2013Q1

REPORT INFORMATION
  Report Type: Spontaneous
  Country: US (occurrence: US)
  Receive Date: 20130304
  Receipt Date: 20130304
  Transmission Date: 20140127
  Serious: No
  Sender: FDA-Public Use
  Company Number: US-BAYER-2013-021971

PATIENT
  Sex: Male

DRUGS (1)
  1. CIPRO [Suspect]
     Dosage: UNK
     Dates: start: 201211

REACTIONS (4)
  - Visual impairment [None]
  - Confusional state [None]
  - Headache [None]
  - Anxiety [None]
